FAERS Safety Report 7377275-2 (Version None)
Quarter: 2011Q1

REPORT INFORMATION
  Report Type: 
  Country: None (occurrence: None)
  Receive Date: 20110328
  Receipt Date: 20110314
  Transmission Date: 20110831
  Serious: Yes (Other)
  Sender: FDA-Public Use
  Company Number: US-JNJFOC-20110306394

PATIENT
  Sex: Female

DRUGS (4)
  1. REMICADE [Suspect]
     Indication: CROHN'S DISEASE
     Route: 042
  2. REMICADE [Suspect]
     Route: 042
  3. METHOTREXATE [Concomitant]
     Indication: CROHN'S DISEASE
  4. PREDNISONE [Concomitant]
     Indication: CROHN'S DISEASE

REACTIONS (8)
  - SHORT-BOWEL SYNDROME [None]
  - HEADACHE [None]
  - CONDITION AGGRAVATED [None]
  - PANCREATITIS [None]
  - COUGH [None]
  - OROPHARYNGEAL PAIN [None]
  - RENAL FAILURE [None]
  - MUCOSAL HAEMORRHAGE [None]
